FAERS Safety Report 6452710-2 (Version None)
Quarter: 2009Q4

REPORT INFORMATION
  Report Type: 
  Country: None (occurrence: None)
  Receive Date: 20091123
  Receipt Date: 20091123
  Transmission Date: 20100525
  Serious: No
  Sender: FDA-Public Use
  Company Number: None

PATIENT
  Sex: Female

DRUGS (1)
  1. TENORMIN [Suspect]

REACTIONS (4)
  - BLOOD PRESSURE INCREASED [None]
  - COUGH [None]
  - ECONOMIC PROBLEM [None]
  - MIGRAINE [None]
